FAERS Safety Report 25568645 (Version 1)
Quarter: 2025Q3

REPORT INFORMATION
  Report Type: Report from Study
  Country: EU (occurrence: EU)
  Receive Date: 20250716
  Receipt Date: 20250716
  Transmission Date: 20251020
  Serious: Yes (Other)
  Sender: MYLAN
  Company Number: None

PATIENT
  Age: 86 Year
  Sex: Male

DRUGS (6)
  1. PANTOPRAZOLE [Suspect]
     Active Substance: PANTOPRAZOLE
     Indication: Product used for unknown indication
     Dosage: 40 MILLIGRAM, QD (1DD)
     Dates: end: 20160301
  2. ASPIRIN [Concomitant]
     Active Substance: ASPIRIN
  3. PERINDOPRIL ERBUMINE [Concomitant]
     Active Substance: PERINDOPRIL ERBUMINE
  4. EZETIMIBE [Concomitant]
     Active Substance: EZETIMIBE
  5. DUTASTERIDE\TAMSULOSIN [Concomitant]
     Active Substance: DUTASTERIDE\TAMSULOSIN
  6. DESOXIMETASONE [Concomitant]
     Active Substance: DESOXIMETASONE

REACTIONS (2)
  - Cutaneous vasculitis [Recovered/Resolved]
  - Cryptogenic cirrhosis [Recovered/Resolved]

NARRATIVE: CASE EVENT DATE: 20160129
